FAERS Safety Report 7425803-0 (Version None)
Quarter: 2011Q2

REPORT INFORMATION
  Report Type: 
  Country: None (occurrence: None)
  Receive Date: 20110420
  Receipt Date: 20110412
  Transmission Date: 20111010
  Serious: Yes (Death)
  Sender: FDA-Public Use
  Company Number: JP-PFIZER INC-2011078617

PATIENT

DRUGS (2)
  1. MEROPENEM [Suspect]
     Route: 041
  2. ZYVOX [Suspect]
     Route: 041

REACTIONS (2)
  - DEATH [None]
  - DRUG ERUPTION [None]
